FAERS Safety Report 7756966-5 (Version None)
Quarter: 2011Q3

REPORT INFORMATION
  Report Type: 
  Country: None (occurrence: None)
  Receive Date: 20110916
  Receipt Date: 20110916
  Transmission Date: 20111222
  Serious: Yes (Life-Threatening, Hospitalization, Other)
  Sender: FDA-Public Use
  Company Number: None

PATIENT
  Age: 64 Year
  Sex: Male
  Weight: 72.574 kg

DRUGS (2)
  1. TOPIRAMATE [Concomitant]
     Indication: FIBROMYALGIA
     Dosage: 1-2 TABLETS
     Route: 048
     Dates: start: 20110707, end: 20110822
  2. CLONAZEPAM [Suspect]
     Indication: SOMNOLENCE
     Dosage: 1/2 - 2 TABLETS
     Route: 048
     Dates: start: 20110707, end: 20110822

REACTIONS (5)
  - DISORIENTATION [None]
  - ABNORMAL DREAMS [None]
  - GAIT DISTURBANCE [None]
  - AMNESIA [None]
  - IMPAIRED DRIVING ABILITY [None]
